FAERS Safety Report 9660105 (Version 1)
Quarter: 2013Q4

REPORT INFORMATION
  Report Type: Spontaneous
  Country: ES (occurrence: ES)
  Receive Date: 20131031
  Receipt Date: 20131031
  Transmission Date: 20140711
  Serious: Yes (Other)
  Sender: FDA-Public Use
  Company Number: ES-JNJFOC-20131016860

PATIENT
  Age: 38 Year
  Sex: Female
  Weight: 63 kg

DRUGS (3)
  1. STELARA [Suspect]
     Indication: PSORIATIC ARTHROPATHY
     Dosage: THIRD DOSE
     Route: 058
     Dates: start: 20130726
  2. STELARA [Suspect]
     Indication: PSORIATIC ARTHROPATHY
     Dosage: FOURTH DOSE
     Route: 058
     Dates: start: 20131025
  3. STELARA [Suspect]
     Indication: PSORIATIC ARTHROPATHY
     Route: 058
     Dates: start: 20130403

REACTIONS (4)
  - Urticaria [Recovered/Resolved]
  - Face oedema [Recovered/Resolved]
  - Loss of consciousness [Recovered/Resolved]
  - Dizziness [Recovered/Resolved]
